FAERS Safety Report 18638542 (Version 1)
Quarter: 2020Q4

REPORT INFORMATION
  Report Type: Spontaneous
  Country: US (occurrence: US)
  Receive Date: 20201218
  Receipt Date: 20201218
  Transmission Date: 20210114
  Serious: Yes (Other)
  Sender: FDA-Public Use
  Company Number: US-PURDUE-USA-2020-0189666

PATIENT
  Age: 7 Year
  Sex: Male

DRUGS (3)
  1. NON-PMN THEOPHYLLINE [Suspect]
     Active Substance: THEOPHYLLINE ANHYDROUS
     Indication: SPINAL CORD INJURY CERVICAL
     Dosage: 150 MG, TID
     Route: 065
  2. NON-PMN THEOPHYLLINE [Suspect]
     Active Substance: THEOPHYLLINE ANHYDROUS
     Dosage: UNK
     Route: 065
  3. NON-PMN THEOPHYLLINE [Suspect]
     Active Substance: THEOPHYLLINE ANHYDROUS
     Dosage: 3.5 MG/KG
     Route: 065

REACTIONS (5)
  - Cardiac arrest [Unknown]
  - Drug ineffective [Unknown]
  - Hydrocephalus [Unknown]
  - Sinus bradycardia [Unknown]
  - Sinus arrest [Unknown]
